FAERS Safety Report 7044203-9 (Version None)
Quarter: 2010Q4

REPORT INFORMATION
  Report Type: 
  Country: None (occurrence: None)
  Receive Date: 20101014
  Receipt Date: 20101005
  Transmission Date: 20110411
  Serious: Yes (Hospitalization)
  Sender: FDA-Public Use
  Company Number: US-BIOGENIDEC-2010BI032426

PATIENT
  Age: 53 Year
  Sex: Female

DRUGS (9)
  1. TYSABRI [Suspect]
     Indication: MULTIPLE SCLEROSIS
     Route: 042
     Dates: start: 20090120
  2. TRAZODONE HCL [Concomitant]
     Indication: DEPRESSION
  3. TRAZODONE HCL [Concomitant]
     Indication: BIPOLAR DISORDER
  4. DILANTIN SR [Concomitant]
     Indication: CONVULSION
     Route: 048
  5. LEXAPRO [Concomitant]
     Indication: DEPRESSION
  6. SYNTHROID [Concomitant]
     Indication: HYPOTHYROIDISM
     Route: 048
  7. TRICOR [Concomitant]
     Indication: HYPERLIPIDAEMIA
     Route: 048
  8. LITHIUM [Concomitant]
     Indication: BIPOLAR DISORDER
  9. PREMARIN [Concomitant]
     Indication: PRODUCT USED FOR UNKNOWN INDICATION

REACTIONS (15)
  - ABDOMINAL ADHESIONS [None]
  - ABDOMINAL PAIN UPPER [None]
  - ANAEMIA [None]
  - CONSTIPATION [None]
  - DEHYDRATION [None]
  - FAECAL VOMITING [None]
  - HYPERCALCAEMIA [None]
  - HYPERPARATHYROIDISM [None]
  - HYPOTHYROIDISM [None]
  - INTESTINAL OBSTRUCTION [None]
  - IRON DEFICIENCY [None]
  - LEUKOCYTOSIS [None]
  - NAUSEA [None]
  - PNEUMONIA [None]
  - URINARY TRACT INFECTION [None]
